FAERS Safety Report 8306438-4 (Version None)
Quarter: 2012Q2

REPORT INFORMATION
  Report Type: 
  Country: None (occurrence: None)
  Receive Date: 20120423
  Receipt Date: 20120413
  Transmission Date: 20120825
  Serious: Yes (Other)
  Sender: FDA-Public Use
  Company Number: TW-BRISTOL-MYERS SQUIBB COMPANY-16253767

PATIENT
  Age: 58 Year
  Sex: Male

DRUGS (3)
  1. TENOFOVIR [Concomitant]
  2. EMTRICITABINE [Concomitant]
  3. EFAVIRENZ [Suspect]
     Indication: HIV INFECTION
     Route: 048

REACTIONS (2)
  - MYASTHENIA GRAVIS [None]
  - IMMUNE RECONSTITUTION SYNDROME [None]
